FAERS Safety Report 6096344-0 (Version None)
Quarter: 2009Q1

REPORT INFORMATION
  Report Type: 
  Country: None (occurrence: None)
  Receive Date: 20090227
  Receipt Date: 20081118
  Transmission Date: 20090719
  Serious: No
  Sender: FDA-Public Use
  Company Number: A0757031A

PATIENT
  Sex: Female

DRUGS (12)
  1. LAMICTAL [Suspect]
     Indication: DRUG USE FOR UNKNOWN INDICATION
     Dosage: 200MG PER DAY
     Route: 048
     Dates: start: 20070101
  2. LORAZEPAM [Concomitant]
  3. LASIX [Concomitant]
  4. PROPRANOLOL [Concomitant]
  5. PREVACID [Concomitant]
  6. SINGULAIR [Concomitant]
  7. CRESTOR [Concomitant]
  8. TRAZODONE HCL [Concomitant]
  9. EFFEXOR [Concomitant]
  10. MULTI-VITAMIN [Concomitant]
  11. B12 VITAMIN [Concomitant]
  12. ASCORBIC ACID [Concomitant]

REACTIONS (2)
  - DEPRESSION [None]
  - DRUG INEFFECTIVE [None]
